FAERS Safety Report 6315252-0 (Version None)
Quarter: 2009Q3

REPORT INFORMATION
  Report Type: 
  Country: None (occurrence: None)
  Receive Date: 20090819
  Receipt Date: 20090811
  Transmission Date: 20100115
  Serious: Yes (Other)
  Sender: FDA-Public Use
  Company Number: PHHY2009BE31811

PATIENT
  Sex: Male
  Weight: 108 kg

DRUGS (8)
  1. RASILEZ [Suspect]
     Indication: HYPERTENSION
     Dosage: 150 MG DAILY
     Route: 048
     Dates: start: 20090625
  2. RASILEZ [Suspect]
     Dosage: 300 MG DAILY
     Route: 048
     Dates: end: 20090710
  3. ALDACTAZINE [Concomitant]
  4. CORUNO [Concomitant]
  5. CYMBALTA [Concomitant]
     Dosage: 60 MG DAILY
  6. EMCONCOR [Concomitant]
  7. COVERAM (PERINDOPRIL ARGININE/AMLODIPINE BESILATE) [Concomitant]
     Dosage: UNK
     Dates: start: 20090625, end: 20090703
  8. MICARDIS HCT [Concomitant]

REACTIONS (8)
  - BLOOD PRESSURE ABNORMAL [None]
  - ECZEMA [None]
  - HEART RATE INCREASED [None]
  - OEDEMA PERIPHERAL [None]
  - PALPITATIONS [None]
  - PUSTULAR PSORIASIS [None]
  - TACHYCARDIA [None]
  - URTICARIA [None]
